FAERS Safety Report 4662417-X (Version None)
Quarter: 2005Q2

REPORT INFORMATION
  Report Type: 
  Country: None (occurrence: None)
  Receive Date: 20050512
  Receipt Date: 20050429
  Transmission Date: 20051028
  Serious: Yes (Hospitalization)
  Sender: FDA-Public Use
  Company Number: 2005060457

PATIENT
  Age: 3 Year
  Sex: Female

DRUGS (2)
  1. IRINOTECAN HCL [Suspect]
     Indication: RHABDOMYOSARCOMA
     Dosage: 600 MG/M2, INTERVAL:  EVERY 3 WEEKS, SUBCUTANEOUS
     Route: 058
     Dates: start: 20041220, end: 20050221
  2. ATROPINE [Concomitant]

REACTIONS (3)
  - DRUG EFFECT DECREASED [None]
  - HALLUCINATION [None]
  - INSOMNIA [None]
